FAERS Safety Report 17682932 (Version 2)
Quarter: 2020Q2

REPORT INFORMATION
  Report Type: Report from Study
  Country: US (occurrence: US)
  Receive Date: 20200420
  Receipt Date: 20200513
  Transmission Date: 20200714
  Serious: Yes (Other)
  Sender: FDA-Public Use
  Company Number: US-BEH-2020115884

PATIENT
  Age: 25 Year
  Sex: Female

DRUGS (2)
  1. HIZENTRA [Suspect]
     Active Substance: HUMAN IMMUNOGLOBULIN G
     Indication: IMMUNODEFICIENCY
     Dosage: 4 GRAM, QOW, 2 SITES
     Route: 058
     Dates: start: 20191227
  2. HIZENTRA [Suspect]
     Active Substance: HUMAN IMMUNOGLOBULIN G
     Indication: PRIMARY IMMUNODEFICIENCY SYNDROME
     Dosage: UNK
     Route: 058
     Dates: start: 20200214

REACTIONS (9)
  - Infusion site scar [Unknown]
  - Infusion site nodule [Unknown]
  - Infusion site nodule [Recovering/Resolving]
  - Infusion site swelling [Unknown]
  - Rash [Unknown]
  - Infusion site extravasation [Recovering/Resolving]
  - Cardiac pacemaker insertion [Unknown]
  - Vasculitis [Unknown]
  - Infusion site swelling [Unknown]

NARRATIVE: CASE EVENT DATE: 20200410
